FAERS Safety Report 13129890 (Version 2)
Quarter: 2017Q1

REPORT INFORMATION
  Report Type: Report from Study
  Country: US (occurrence: US)
  Receive Date: 20170119
  Receipt Date: 20170124
  Transmission Date: 20170428
  Serious: No
  Sender: FDA-Public Use
  Company Number: US-AMGEN-USASL2017005492

PATIENT
  Sex: Female

DRUGS (1)
  1. ENBREL [Suspect]
     Active Substance: ETANERCEPT
     Indication: RHEUMATOID ARTHRITIS
     Dosage: 50 MG, QWK
     Route: 065
     Dates: start: 20161213

REACTIONS (5)
  - Injection site pain [Unknown]
  - Injection site haemorrhage [Unknown]
  - Drug ineffective [Unknown]
  - Drug dose omission [Unknown]
  - Gait disturbance [Not Recovered/Not Resolved]
